FAERS Safety Report 8255854-8 (Version None)
Quarter: 2012Q2

REPORT INFORMATION
  Report Type: 
  Country: None (occurrence: None)
  Receive Date: 20120403
  Receipt Date: 20120330
  Transmission Date: 20120825
  Serious: Yes (Life-Threatening)
  Sender: FDA-Public Use
  Company Number: FR-SANOFI-AVENTIS-2012SA022168

PATIENT
  Age: 64 Year
  Sex: Male

DRUGS (1)
  1. ELOXATIN [Suspect]
     Route: 065
     Dates: start: 20060101, end: 20060701

REACTIONS (1)
  - HEPATIC FIBROSIS [None]
